FAERS Safety Report 6625924-6 (Version None)
Quarter: 2010Q1

REPORT INFORMATION
  Report Type: 
  Country: None (occurrence: None)
  Receive Date: 20100310
  Receipt Date: 20100302
  Transmission Date: 20100710
  Serious: Yes (Other)
  Sender: FDA-Public Use
  Company Number: GXKR2010ES00815

PATIENT
  Age: 84 Year
  Sex: Female

DRUGS (4)
  1. ZOLPIDEM (NGX) [Suspect]
     Indication: DEPRESSION
     Dosage: 10 MG, QD (AT NIGHT)
     Route: 048
     Dates: start: 20070929
  2. ESCITALOPRAM [Concomitant]
     Dosage: 10 MG, QD
     Route: 065
     Dates: start: 20070927
  3. ESCITALOPRAM [Concomitant]
     Dosage: 20 MG, QD
     Route: 065
     Dates: start: 20070929
  4. RESINCALCIO [Concomitant]

REACTIONS (6)
  - DYSPNOEA [None]
  - ENCEPHALOPATHY [None]
  - LOSS OF CONSCIOUSNESS [None]
  - OXYGEN SATURATION DECREASED [None]
  - RESPIRATORY FAILURE [None]
  - SOMNOLENCE [None]
